FAERS Safety Report 25739938 (Version 1)
Quarter: 2025Q3

REPORT INFORMATION
  Report Type: Other
  Country: EU (occurrence: EU)
  Receive Date: 20250829
  Receipt Date: 20250829
  Transmission Date: 20251021
  Serious: Yes (Hospitalization)
  Sender: Atnahs Healthcare
  Company Number: None

PATIENT

DRUGS (4)
  1. KETOROLAC TROMETHAMINE [Suspect]
     Active Substance: KETOROLAC TROMETHAMINE
     Indication: Intentional overdose
     Route: 048
     Dates: start: 20250824, end: 20250824
  2. IBUPROFEN [Suspect]
     Active Substance: IBUPROFEN
     Indication: Intentional overdose
     Route: 048
     Dates: start: 20250824, end: 20250824
  3. AMITRIPTYLINE HYDROCHLORIDE [Suspect]
     Active Substance: AMITRIPTYLINE HYDROCHLORIDE
     Indication: Intentional overdose
     Route: 048
     Dates: start: 20250824, end: 20250824
  4. DIAZEPAM [Suspect]
     Active Substance: DIAZEPAM
     Indication: Intentional overdose
     Route: 048
     Dates: start: 20250824, end: 20250824

REACTIONS (3)
  - Coma [Not Recovered/Not Resolved]
  - Intentional overdose [Not Recovered/Not Resolved]
  - Drug abuse [Not Recovered/Not Resolved]

NARRATIVE: CASE EVENT DATE: 20250824
